FAERS Safety Report 23496599 (Version 1)
Quarter: 2024Q1

REPORT INFORMATION
  Report Type: Spontaneous
  Country: US (occurrence: None)
  Receive Date: 20240207
  Receipt Date: 20240207
  Transmission Date: 20240409
  Serious: Yes (Death)
  Sender: FDA-Public Use
  Company Number: None

PATIENT
  Age: 73 Year
  Sex: Male

DRUGS (1)
  1. LENALIDOMIDE [Suspect]
     Active Substance: LENALIDOMIDE
     Indication: Plasmacytoma
     Dosage: 10MG QD ORAL
     Route: 048
     Dates: start: 20230410, end: 20231127

REACTIONS (3)
  - Pleural effusion [None]
  - Pulmonary embolism [None]
  - Lung abscess [None]

NARRATIVE: CASE EVENT DATE: 20231129
